FAERS Safety Report 9377168 (Version 3)
Quarter: 2013Q3

REPORT INFORMATION
  Report Type: Spontaneous
  Country: US (occurrence: US)
  Receive Date: 20130701
  Receipt Date: 20130813
  Transmission Date: 20140515
  Serious: No
  Sender: FDA-Public Use
  Company Number: US-009507513-1307USA000051

PATIENT
  Sex: Female

DRUGS (3)
  1. PEGINTRON [Suspect]
     Indication: HEPATITIS C
     Dosage: REDIPEN
     Dates: start: 20130614, end: 20130714
  2. REBETOL [Suspect]
     Indication: HEPATITIS C
     Dosage: UNKNOWN
     Route: 048
     Dates: start: 20130614, end: 20130714
  3. VICTRELIS [Suspect]
     Dosage: UNK
     Route: 048
     Dates: start: 20130709, end: 20130709

REACTIONS (12)
  - Bone pain [Unknown]
  - Abdominal pain upper [Unknown]
  - Influenza like illness [Unknown]
  - Feeling abnormal [Unknown]
  - Asthenia [Unknown]
  - Bone pain [Unknown]
  - Muscular weakness [Unknown]
  - Gait disturbance [Unknown]
  - Dyspepsia [Unknown]
  - Nausea [Unknown]
  - Pyrexia [Unknown]
  - Adverse event [Unknown]
